FAERS Safety Report 4733563-7 (Version None)
Quarter: 2005Q3

REPORT INFORMATION
  Report Type: 
  Country: None (occurrence: None)
  Receive Date: 20050729
  Receipt Date: 20050429
  Transmission Date: 20060218
  Serious: No
  Sender: FDA-Public Use
  Company Number: COT_0060_2005

PATIENT
  Age: 45 Year
  Sex: Female
  Weight: 95.709 kg

DRUGS (24)
  1. VENTAVIS [Suspect]
     Indication: PULMONARY HYPERTENSION
     Dosage: 5 MCG 5XD IH
     Route: 055
     Dates: start: 20050101
  2. TRACLEER [Concomitant]
  3. VIAGRA [Concomitant]
  4. L-ARGININE [Concomitant]
  5. BUMEX [Concomitant]
  6. ALDACTONE [Concomitant]
  7. LIPITOR [Concomitant]
  8. WARFARIN [Concomitant]
  9. NEXIUM [Concomitant]
  10. SINGULAIR ^DIECKMANN^ [Concomitant]
  11. FLOVENT [Concomitant]
  12. ALBUTEROL [Concomitant]
  13. NASACORT AQ [Concomitant]
  14. ASTELIN [Concomitant]
  15. KLOR-CON [Concomitant]
  16. OXYGEN [Concomitant]
  17. IRON SUPPLEMENTS [Concomitant]
  18. CALCIUM SUPPLEMENTS [Concomitant]
  19. BUMEX [Concomitant]
  20. FLOVENT [Concomitant]
  21. NASACORT AQ [Concomitant]
  22. ASTELIN [Concomitant]
  23. KLOR CONCENTRATE [Concomitant]
  24. OXYGEN [Concomitant]

REACTIONS (2)
  - COUGH [None]
  - STOMATITIS [None]
